FAERS Safety Report 5898331-1 (Version None)
Quarter: 2008Q3

REPORT INFORMATION
  Report Type: 
  Country: None (occurrence: None)
  Receive Date: 20080925
  Receipt Date: 20070917
  Transmission Date: 20090109
  Serious: No
  Sender: FDA-Public Use
  Company Number: A0682458A

PATIENT
  Age: 50 Year
  Sex: Female

DRUGS (4)
  1. WELLBUTRIN XL [Suspect]
     Indication: DEPRESSION
     Dosage: 150MG PER DAY
     Route: 048
     Dates: start: 20040101, end: 20070913
  2. MAXZIDE [Concomitant]
  3. LOPRESSOR [Concomitant]
  4. EFFEXOR [Concomitant]

REACTIONS (1)
  - ALOPECIA [None]
